FAERS Safety Report 20622487 (Version 1)
Quarter: 2022Q1

REPORT INFORMATION
  Report Type: Report from Study
  Country: US (occurrence: US)
  Receive Date: 20220322
  Receipt Date: 20220322
  Transmission Date: 20220423
  Serious: Yes (Other)
  Sender: FDA-Public Use
  Company Number: US-NOVARTISPH-NVSC2022US063726

PATIENT
  Age: 39 Year
  Sex: Female

DRUGS (1)
  1. DEXAMETHASONE [Suspect]
     Active Substance: DEXAMETHASONE
     Indication: Product used for unknown indication
     Dosage: UNK
     Route: 065

REACTIONS (13)
  - Immune thrombocytopenia [Unknown]
  - Platelet count abnormal [Unknown]
  - Cognitive disorder [Unknown]
  - Asthenia [Unknown]
  - Fatigue [Unknown]
  - Emotional disorder [Unknown]
  - Depressed mood [Unknown]
  - Disturbance in attention [Unknown]
  - Negative thoughts [Unknown]
  - Purpura [Unknown]
  - Decreased appetite [Unknown]
  - Initial insomnia [Unknown]
  - Drug ineffective [Unknown]
